FAERS Safety Report 21415221 (Version 9)
Quarter: 2024Q3

REPORT INFORMATION
  Report Type: Spontaneous
  Country: US (occurrence: US)
  Receive Date: 20221006
  Receipt Date: 20240730
  Transmission Date: 20241017
  Serious: No
  Sender: SANOFI AVENTIS
  Company Number: US-SA-SAC20221003001423

PATIENT
  Age: 53 Year
  Sex: Male

DRUGS (1)
  1. NEXVIAZYME [Suspect]
     Active Substance: AVALGLUCOSIDASE ALFA-NGPT
     Dosage: UNK
     Route: 041
     Dates: end: 20240522

REACTIONS (2)
  - Drug specific antibody present [Recovering/Resolving]
  - Intercepted product preparation error [Unknown]

NARRATIVE: CASE EVENT DATE: 20220914
